FAERS Safety Report 4710459-8 (Version None)
Quarter: 2005Q3

REPORT INFORMATION
  Report Type: 
  Country: None (occurrence: None)
  Receive Date: 20050711
  Receipt Date: 20050627
  Transmission Date: 20060218
  Serious: Yes (Hospitalization)
  Sender: FDA-Public Use
  Company Number: FR-JNJFOC-20050606693

PATIENT
  Age: 72 Year
  Sex: Female

DRUGS (5)
  1. RISPERDAL [Suspect]
     Route: 049
  2. DEPAMIDE [Suspect]
     Indication: DRUG USE FOR UNKNOWN INDICATION
     Route: 065
  3. ATARAX [Concomitant]
  4. DAFALGAN [Concomitant]
  5. STILNOX [Concomitant]

REACTIONS (1)
  - ACUTE GENERALISED EXANTHEMATOUS PUSTULOSIS [None]
